FAERS Safety Report 7523620-4 (Version None)
Quarter: 2011Q2

REPORT INFORMATION
  Report Type: 
  Country: None (occurrence: None)
  Receive Date: 20110603
  Receipt Date: 20110527
  Transmission Date: 20111010
  Serious: Yes (Hospitalization)
  Sender: FDA-Public Use
  Company Number: MX-SANOFI-AVENTIS-2011SA033796

PATIENT
  Age: 53 Year
  Sex: Female
  Weight: 70 kg

DRUGS (5)
  1. LANTUS [Suspect]
     Indication: DIABETES MELLITUS
     Dosage: 35IU IN MORNING AND 10UI AT NIGHT
     Route: 058
     Dates: start: 20101101, end: 20110527
  2. SOLOSTAR [Suspect]
  3. LANTUS [Suspect]
     Route: 058
     Dates: start: 20080101
  4. LANTUS [Suspect]
     Route: 058
     Dates: start: 20110528
  5. ENALAPRIL MALEATE [Concomitant]
     Route: 048

REACTIONS (5)
  - ASTHENIA [None]
  - HYPERGLYCAEMIA [None]
  - HYPERTENSION [None]
  - DIARRHOEA [None]
  - DEHYDRATION [None]
